FAERS Safety Report 9367368 (Version 1)
Quarter: 2013Q2

REPORT INFORMATION
  Report Type: Spontaneous
  Country: GB (occurrence: GB)
  Receive Date: 20130625
  Receipt Date: 20130625
  Transmission Date: 20140414
  Serious: Yes (Hospitalization, Other)
  Sender: FDA-Public Use
  Company Number: GB-B.I. PHARMACEUTICALS,INC./RIDGEFIELD-2013-UK-01294UK

PATIENT
  Age: 81 Year
  Sex: Female
  Weight: 80 kg

DRUGS (3)
  1. PRADAXA [Suspect]
     Indication: KNEE ARTHROPLASTY
     Dosage: 150 MG
     Route: 048
     Dates: start: 20121203, end: 20121212
  2. MADOPAR [Concomitant]
     Indication: PARKINSON^S DISEASE
     Dosage: 375 MG
     Dates: start: 20121206, end: 20121212
  3. TRIMETHOPRIM [Concomitant]
     Dosage: 400 MG
     Route: 048
     Dates: start: 20121204, end: 20121207

REACTIONS (1)
  - Hepatitis acute [Recovered/Resolved]
